FAERS Safety Report 23276385 (Version 1)
Quarter: 2023Q4

REPORT INFORMATION
  Report Type: Spontaneous
  Country: US (occurrence: US)
  Receive Date: 20231208
  Receipt Date: 20231208
  Transmission Date: 20240109
  Serious: No
  Sender: FDA-Public Use
  Company Number: US-ABBVIE-5524150

PATIENT
  Sex: Female

DRUGS (1)
  1. KYBELLA [Suspect]
     Active Substance: DEOXYCHOLIC ACID
     Indication: Lipolysis procedure
     Route: 058
     Dates: start: 20231030

REACTIONS (2)
  - Ecchymosis [Recovering/Resolving]
  - Vascular injury [Recovering/Resolving]

NARRATIVE: CASE EVENT DATE: 20231127
